FAERS Safety Report 9325252 (Version 3)
Quarter: 2013Q3

REPORT INFORMATION
  Report Type: Spontaneous
  Country: TW (occurrence: TW)
  Receive Date: 20130604
  Receipt Date: 20130701
  Transmission Date: 20140515
  Serious: Yes (Hospitalization, Other)
  Sender: FDA-Public Use
  Company Number: TW-AMGEN-TWNSP2013033362

PATIENT
  Age: 51 Year
  Sex: Male

DRUGS (3)
  1. ENBREL [Suspect]
     Indication: PSORIATIC ARTHROPATHY
     Dosage: 25 MG, 2X/WEEK
     Route: 058
     Dates: start: 20130220, end: 20130406
  2. ENBREL [Suspect]
     Indication: PSORIASIS
  3. LEFLUNOMIDE [Concomitant]
     Dosage: UNK

REACTIONS (17)
  - Dermatitis exfoliative [Recovering/Resolving]
  - Pyrexia [Unknown]
  - Tachycardia [Unknown]
  - Skin exfoliation [Unknown]
  - Gouty arthritis [Unknown]
  - Oedema [Unknown]
  - Rash erythematous [Unknown]
  - Feeling cold [Unknown]
  - Drug hypersensitivity [Recovering/Resolving]
  - Arthralgia [Recovering/Resolving]
  - Joint warmth [Unknown]
  - Joint range of motion decreased [Unknown]
  - Chest discomfort [Unknown]
  - Troponin I increased [Unknown]
  - Electrocardiogram ST segment elevation [Unknown]
  - Pustular psoriasis [Recovering/Resolving]
  - Wound infection [Recovering/Resolving]
